FAERS Safety Report 4283342-2 (Version None)
Quarter: 2004Q1

REPORT INFORMATION
  Report Type: 
  Country: None (occurrence: None)
  Receive Date: 20040129
  Receipt Date: 20040114
  Transmission Date: 20041129
  Serious: No
  Sender: FDA-Public Use
  Company Number: GB-JNJFOC-20030805923

PATIENT
  Age: 82 Year
  Sex: Male

DRUGS (7)
  1. REMICADE [Suspect]
     Indication: RHEUMATOID ARTHRITIS
     Dosage: 200 MG, 1 IN 1 DAY, INTRAVENOUS
     Route: 042
     Dates: start: 20021212, end: 20021212
  2. METHOTREXATE [Concomitant]
  3. FOLIC ACID [Concomitant]
  4. PREDNISOLONE [Concomitant]
  5. NABUMETONE [Concomitant]
  6. LANSOPRAZOLE [Concomitant]
  7. SOTALOL HCL [Concomitant]

REACTIONS (1)
  - SKIN LESION [None]
